FAERS Safety Report 8190929-3 (Version None)
Quarter: 2012Q1

REPORT INFORMATION
  Report Type: 
  Country: None (occurrence: None)
  Receive Date: 20120307
  Receipt Date: 20120306
  Transmission Date: 20120608
  Serious: Yes (Death)
  Sender: FDA-Public Use
  Company Number: DE-ABBOTT-12P-062-0911614-00

PATIENT
  Age: 71 Year
  Sex: Female
  Weight: 125 kg

DRUGS (1)
  1. ZEMPLAR [Suspect]
     Indication: HYPERPARATHYROIDISM SECONDARY
     Dates: start: 20100831

REACTIONS (4)
  - SKIN ULCER [None]
  - PNEUMONIA [None]
  - SEPSIS [None]
  - GANGRENE [None]
